FAERS Safety Report 25396388 (Version 1)
Quarter: 2025Q2

REPORT INFORMATION
  Report Type: Spontaneous
  Country: GB (occurrence: None)
  Receive Date: 20250603
  Receipt Date: 20250603
  Transmission Date: 20250716
  Serious: Yes (Other)
  Sender: FDA-CTU
  Company Number: None

PATIENT
  Age: 33 Year
  Sex: Female
  Weight: 50 kg

DRUGS (1)
  1. SERTRALINE [Suspect]
     Active Substance: SERTRALINE HYDROCHLORIDE
     Indication: Anxiety
     Dates: start: 20201127, end: 20210414

REACTIONS (44)
  - Dyspepsia [None]
  - Gastrointestinal disorder [None]
  - Dizziness [None]
  - Hunger [None]
  - Weight increased [None]
  - Hyperhidrosis [None]
  - Night sweats [None]
  - Skin odour abnormal [None]
  - Oral herpes [None]
  - Therapy interrupted [None]
  - Withdrawal syndrome [None]
  - Bone pain [None]
  - Restless legs syndrome [None]
  - Eye pain [None]
  - Vision blurred [None]
  - Headache [None]
  - Anxiety [None]
  - Paraesthesia [None]
  - Photopsia [None]
  - Weight decreased [None]
  - Akathisia [None]
  - Electric shock sensation [None]
  - Vitreous floaters [None]
  - Panic attack [None]
  - Oropharyngeal pain [None]
  - Chest pain [None]
  - Diarrhoea [None]
  - Proctalgia [None]
  - Acrochordon [None]
  - Dry eye [None]
  - Dry mouth [None]
  - Melanocytic naevus [None]
  - Anxiety [None]
  - Muscle atrophy [None]
  - Anhedonia [None]
  - Contusion [None]
  - Tremor [None]
  - Alopecia [None]
  - Dry skin [None]
  - Urticaria [None]
  - Pollakiuria [None]
  - White blood cell count decreased [None]
  - Lymphadenopathy [None]
  - Acne [None]

NARRATIVE: CASE EVENT DATE: 20240916
